FAERS Safety Report 5253736-7 (Version None)
Quarter: 2007Q1

REPORT INFORMATION
  Report Type: 
  Country: None (occurrence: None)
  Receive Date: 20061201
  Receipt Date: 20060803
  Transmission Date: 20070707
  Serious: No
  Sender: FDA-Public Use
  Company Number: 2006PV018785

PATIENT
  Age: 75 Year
  Sex: Male
  Weight: 136.0791 kg

DRUGS (15)
  1. BYETTA [Suspect]
     Indication: DIABETES MELLITUS NON-INSULIN-DEPENDENT
     Dosage: 10 MCG;BID;SC : 10 MCG;BID;SC : 5 MCG;BID,SC
     Route: 058
     Dates: start: 20060202, end: 20060301
  2. BYETTA [Suspect]
     Indication: DIABETES MELLITUS NON-INSULIN-DEPENDENT
     Dosage: 10 MCG;BID;SC : 10 MCG;BID;SC : 5 MCG;BID,SC
     Route: 058
     Dates: start: 20060302, end: 20060527
  3. BYETTA [Suspect]
     Indication: DIABETES MELLITUS NON-INSULIN-DEPENDENT
     Dosage: 10 MCG;BID;SC : 10 MCG;BID;SC : 5 MCG;BID,SC
     Route: 058
     Dates: start: 20060601
  4. GLIPIZIDE [Concomitant]
  5. METFORMIN HCL [Concomitant]
  6. LIPITOR [Concomitant]
  7. MULTI-VITAMINS [Concomitant]
  8. NORVASC [Concomitant]
  9. SINGULAIR [Concomitant]
  10. TERAZOSIN HCL [Concomitant]
  11. ZETIA [Concomitant]
  12. NASACORT [Concomitant]
  13. ASPIRIN [Concomitant]
  14. DIOVAN [Concomitant]
  15. LEVOXYL [Concomitant]

REACTIONS (8)
  - ASTHENIA [None]
  - BALANCE DISORDER [None]
  - BLOOD GLUCOSE DECREASED [None]
  - CHILLS [None]
  - DIZZINESS [None]
  - HICCUPS [None]
  - NAUSEA [None]
  - RETCHING [None]
